FAERS Safety Report 16648803 (Version 2)
Quarter: 2019Q3

REPORT INFORMATION
  Report Type: Spontaneous
  Country: JP (occurrence: JP)
  Receive Date: 20190730
  Receipt Date: 20190809
  Transmission Date: 20191004
  Serious: Yes (Death)
  Sender: FDA-Public Use
  Company Number: JP-TAKEDA-2019TJP017529

PATIENT

DRUGS (5)
  1. VITAMEDIN                          /00274301/ [Concomitant]
     Active Substance: BENFOTIAMINE\CYANOCOBALAMIN\PYRIDOXINE HYDROCHLORIDE
     Dosage: DOSAGE IS UNKNOWN
     Route: 041
     Dates: start: 20190725
  2. KN 1A [Concomitant]
     Dosage: DOSAGE IS UNKNOWN
     Route: 041
     Dates: start: 20190725
  3. TAKEPRON INTRAVENOUS 30MG. [Suspect]
     Active Substance: LANSOPRAZOLE
     Indication: PRODUCT USED FOR UNKNOWN INDICATION
     Dosage: 30 MILLIGRAM, BID
     Route: 041
     Dates: start: 20190725
  4. SEISHOKU [Concomitant]
     Active Substance: SODIUM CHLORIDE
     Dosage: DOSAGE IS UNKNOWN
     Route: 041
     Dates: start: 20190725
  5. PREDONINE [Concomitant]
     Active Substance: PREDNISOLONE
     Dosage: DOSAGE IS UNKNOWN
     Route: 041
     Dates: start: 20190725

REACTIONS (3)
  - Product preparation issue [Unknown]
  - Poor quality product administered [Unknown]
  - Death [Fatal]

NARRATIVE: CASE EVENT DATE: 20190725
